FAERS Safety Report 18869020 (Version 1)
Quarter: 2021Q1

REPORT INFORMATION
  Report Type: Report from Study
  Country: None (occurrence: US)
  Receive Date: 20210210
  Receipt Date: 20210210
  Transmission Date: 20210420
  Serious: Yes (Hospitalization, Other)
  Sender: FDA-Public Use
  Company Number: US-ABBVIE-20K-163-3642527-00

PATIENT
  Sex: Female

DRUGS (2)
  1. IMBRUVICA [Suspect]
     Active Substance: IBRUTINIB
     Route: 048
  2. IMBRUVICA [Suspect]
     Active Substance: IBRUTINIB
     Indication: CHRONIC LYMPHOCYTIC LEUKAEMIA
     Route: 048

REACTIONS (9)
  - Peripheral swelling [Recovered/Resolved]
  - Malignant neoplasm progression [Not Recovered/Not Resolved]
  - Injury [Unknown]
  - Pain in extremity [Recovering/Resolving]
  - Pain [Recovering/Resolving]
  - Mobility decreased [Unknown]
  - Nausea [Recovered/Resolved]
  - Hip arthroplasty [Unknown]
  - Inflammation [Unknown]
